FAERS Safety Report 7773325-X (Version None)
Quarter: 2011Q3

REPORT INFORMATION
  Report Type: 
  Country: None (occurrence: None)
  Receive Date: 20110922
  Receipt Date: 20110913
  Transmission Date: 20111222
  Serious: Yes (Other)
  Sender: FDA-Public Use
  Company Number: GR-AMGEN-GRCSP2011047102

PATIENT
  Sex: Female

DRUGS (2)
  1. VECTIBIX [Suspect]
     Indication: COLON CANCER METASTATIC
     Dosage: 100 MUG, QWK
     Dates: end: 20110615
  2. FOLFIRI [Concomitant]
     Indication: COLON CANCER METASTATIC
     Dosage: UNK

REACTIONS (3)
  - ANAEMIA [None]
  - ILEUS [None]
  - HERPES ZOSTER [None]
